FAERS Safety Report 21550799 (Version 4)
Quarter: 2023Q4

REPORT INFORMATION
  Report Type: Spontaneous
  Country: US (occurrence: US)
  Receive Date: 20221103
  Receipt Date: 20231130
  Transmission Date: 20240110
  Serious: Yes (Other)
  Sender: FDA-Public Use
  Company Number: US-PFIZER INC-PV202200089085

PATIENT
  Age: 57 Year
  Sex: Male

DRUGS (3)
  1. XELJANZ XR [Suspect]
     Active Substance: TOFACITINIB CITRATE
     Indication: Psoriatic arthropathy
     Dosage: 11 MG, WEEKLY (11 MG (ONE TABLET, EVERY TUESDAY 84 DAYS)
     Route: 048
  2. XELJANZ XR [Suspect]
     Active Substance: TOFACITINIB CITRATE
     Dosage: 11 MG, 1X/DAY
     Route: 048
  3. XELJANZ XR [Suspect]
     Active Substance: TOFACITINIB CITRATE
     Dosage: 11 MG (1 TABLET ORALLY EVERY TUESDAY)
     Route: 048

REACTIONS (6)
  - Drug hypersensitivity [Unknown]
  - Renal failure [Unknown]
  - Hepatic enzyme increased [Unknown]
  - Blood pressure abnormal [Unknown]
  - Off label use [Unknown]
  - Product use issue [Unknown]
